FAERS Safety Report 20798022 (Version 1)
Quarter: 2022Q2

REPORT INFORMATION
  Report Type: Spontaneous
  Country: CA (occurrence: CA)
  Receive Date: 20220506
  Receipt Date: 20220506
  Transmission Date: 20220720
  Serious: Yes (Other)
  Sender: FDA-Public Use
  Company Number: CA-AMERICAN REGENT INC-2022001279

PATIENT
  Age: 30 Year
  Sex: Female

DRUGS (1)
  1. VENOFER [Suspect]
     Active Substance: IRON SUCROSE
     Indication: Anaemia
     Dosage: 300 MILLIGRAM
     Dates: start: 2021, end: 2021

REACTIONS (7)
  - Muscle tightness [Not Recovered/Not Resolved]
  - Maternal exposure during pregnancy [Unknown]
  - Anxiety [Unknown]
  - Erythema [Unknown]
  - Asthenia [Unknown]
  - Paraesthesia [Unknown]
  - Peripheral swelling [Unknown]

NARRATIVE: CASE EVENT DATE: 20210101
